FAERS Safety Report 8904604 (Version 1)
Quarter: 2012Q4

REPORT INFORMATION
  Report Type: Report from Study
  Country: DE (occurrence: DE)
  Receive Date: 20121113
  Receipt Date: 20121113
  Transmission Date: 20130627
  Serious: Yes (Hospitalization)
  Sender: FDA-Public Use
  Company Number: DE-UCBSA-011776

PATIENT
  Age: 65 Year
  Sex: Female
  Weight: 73 kg

DRUGS (21)
  1. NEUPRO [Suspect]
     Indication: PARKINSON^S DISEASE
     Route: 062
     Dates: start: 20091029, end: 20091202
  2. REQUIP-MODUTAB [Suspect]
     Indication: PARKINSON^S DISEASE
     Dates: start: 20091202, end: 20091208
  3. BERUDUAL SPRAY [Concomitant]
     Indication: CHRONIC OBSTRUCTIVE PULMONARY DISEASE
     Dosage: 1 PUFF AS REQUIRED, FORMULATION - SPRAY
  4. FLUTIDE MITE [Concomitant]
     Indication: CHRONIC OBSTRUCTIVE PULMONARY DISEASE
     Dosage: 1 INHALATION SOLUTION; ONCE DAILY
     Dates: end: 20091027
  5. FLUTIDE MITE [Concomitant]
     Indication: CHRONIC OBSTRUCTIVE PULMONARY DISEASE
     Dosage: 1 INHALATION SOLUTION; ONCE DAILY
     Dates: start: 20091029
  6. ATENOLOL ( ATEHEXAL ) [Concomitant]
     Indication: HYPERTENSION
  7. STALEVO [Concomitant]
     Indication: PARKINSON^S DISEASE
     Dates: start: 20091030, end: 20091030
  8. STALEVO [Concomitant]
     Indication: PARKINSON^S DISEASE
     Dates: start: 20091031, end: 200911
  9. STALEVO [Concomitant]
     Indication: PARKINSON^S DISEASE
     Dates: start: 201001
  10. STALEVO [Concomitant]
     Indication: PARKINSON^S DISEASE
     Dates: start: 201001
  11. AMANTADIN [Concomitant]
     Indication: PARKINSON^S DISEASE
     Dates: start: 200912, end: 201001
  12. AZILECT [Concomitant]
     Indication: PARKINSON^S DISEASE
     Dates: start: 201001
  13. MADOPAR LT [Concomitant]
     Indication: PARKINSON^S DISEASE
     Dates: start: 201001
  14. ISICOM [Concomitant]
     Indication: PARKINSON^S DISEASE
  15. SIFROL [Concomitant]
     Indication: PARKINSON^S DISEASE
     Dates: start: 2002, end: 20091028
  16. SIFROL [Concomitant]
     Indication: PARKINSON^S DISEASE
     Dates: start: 20091209, end: 20091211
  17. SIFROL [Concomitant]
     Indication: PARKINSON^S DISEASE
     Dates: start: 20091212, end: 20091216
  18. SIFROL [Concomitant]
     Indication: PARKINSON^S DISEASE
     Dates: start: 20091217
  19. NACOM [Concomitant]
     Indication: PARKINSON^S DISEASE
     Dates: start: 20091029, end: 20091029
  20. NACOM [Concomitant]
     Indication: PARKINSON^S DISEASE
     Dates: start: 20091030, end: 20091030
  21. NACOM [Concomitant]
     Indication: PARKINSON^S DISEASE
     Dates: start: 20091102

REACTIONS (1)
  - Drug therapy changed [Recovered/Resolved]
